FAERS Safety Report 9333601 (Version 1)
Quarter: 2013Q2

REPORT INFORMATION
  Report Type: Spontaneous
  Country: US (occurrence: US)
  Receive Date: 20130606
  Receipt Date: 20130606
  Transmission Date: 20140414
  Serious: No
  Sender: FDA-Public Use
  Company Number: US-AMGEN-USASP2012079873

PATIENT
  Age: 75 Year
  Sex: Female

DRUGS (14)
  1. PROLIA [Suspect]
     Indication: OSTEOPOROSIS POSTMENOPAUSAL
     Dosage: UNK
     Dates: start: 20121113
  2. CALCIUM [Concomitant]
     Dosage: UNK
  3. VITAMIN D                          /00107901/ [Concomitant]
     Dosage: UNK
  4. ASPIRIN [Concomitant]
     Dosage: 81 MG, QD
  5. MULTIVITAMIN                       /00097801/ [Concomitant]
     Dosage: UNK UNK, QD
  6. STOOL SOFTENER [Concomitant]
     Dosage: UNK
  7. METAMUCIL                          /00029101/ [Concomitant]
     Dosage: UNK
  8. NEXIUM                             /01479302/ [Concomitant]
     Dosage: UNK
  9. AMLODIPINE [Concomitant]
     Dosage: UNK
  10. HYDROCHLOROTHIAZIDE [Concomitant]
     Dosage: UNK
  11. PRAVASTATIN [Concomitant]
     Dosage: UNK
  12. TOPROL [Concomitant]
     Dosage: 50 MG, BID
  13. L-LYSINE                           /00919901/ [Concomitant]
     Dosage: UNK
  14. BENAZEPRIL [Concomitant]
     Dosage: UNK

REACTIONS (2)
  - Back pain [Not Recovered/Not Resolved]
  - Arthralgia [Not Recovered/Not Resolved]
